FAERS Safety Report 12495457 (Version 3)
Quarter: 2016Q3

REPORT INFORMATION
  Report Type: Spontaneous
  Country: US (occurrence: US)
  Receive Date: 20160624
  Receipt Date: 20160908
  Transmission Date: 20161109
  Serious: Yes (Other)
  Sender: FDA-Public Use
  Company Number: US-TEVA-669121USA

PATIENT
  Age: 38 Year
  Sex: Male

DRUGS (2)
  1. ZONISAMIDE. [Concomitant]
     Active Substance: ZONISAMIDE
  2. ZECUITY [Suspect]
     Active Substance: SUMATRIPTAN SUCCINATE
     Indication: HEADACHE
     Route: 062
     Dates: start: 20160612, end: 20160612

REACTIONS (17)
  - Sunburn [Recovered/Resolved]
  - Application site pain [Recovered/Resolved]
  - Application site exfoliation [Recovered/Resolved]
  - Application site pruritus [Recovered/Resolved]
  - Application site discomfort [Recovered/Resolved]
  - Administration site irritation [Recovered/Resolved]
  - Product adhesion issue [Unknown]
  - Administration site scab [Recovered/Resolved]
  - Administration site urticaria [Recovered/Resolved]
  - Application site burn [Recovered/Resolved]
  - Application site erythema [Recovered/Resolved]
  - Application site vesicles [Recovered/Resolved]
  - Chemical injury [Recovered/Resolved]
  - Administration site discolouration [Recovered/Resolved]
  - Administration site paraesthesia [Recovered/Resolved]
  - Application site rash [Recovered/Resolved]
  - Application site erosion [Recovered/Resolved]

NARRATIVE: CASE EVENT DATE: 201606
